FAERS Safety Report 20946589 (Version 1)
Quarter: 2022Q2

REPORT INFORMATION
  Report Type: Report from Study
  Country: ES (occurrence: ES)
  Receive Date: 20220610
  Receipt Date: 20220610
  Transmission Date: 20220721
  Serious: Yes (Death)
  Sender: FDA-Public Use
  Company Number: ES-PFIZER INC-202200791866

PATIENT
  Age: 51 Year
  Sex: Female

DRUGS (2)
  1. EPIRUBICIN HYDROCHLORIDE [Suspect]
     Active Substance: EPIRUBICIN HYDROCHLORIDE
     Indication: Breast cancer metastatic
     Dosage: 15 MIN, ON DAY 1 INFUSION
     Route: 042
  2. TAXOTERE [Suspect]
     Active Substance: DOCETAXEL
     Indication: Breast cancer metastatic
     Dosage: 1 HR LATER, 60 MIN INFUSION
     Route: 042

REACTIONS (4)
  - Pyrexia [Fatal]
  - Hypoxia [Fatal]
  - Dyspnoea [Fatal]
  - Lung infiltration [Fatal]
